FAERS Safety Report 11563956 (Version 1)
Quarter: 2015Q3

REPORT INFORMATION
  Report Type: Report from Study
  Country: AU (occurrence: AU)
  Receive Date: 20150928
  Receipt Date: 20150928
  Transmission Date: 20151125
  Serious: Yes (Death)
  Sender: FDA-Public Use
  Company Number: AU-ABBVIE-15P-008-1470282-00

PATIENT
  Age: 62 Year
  Sex: Male

DRUGS (1)
  1. LUCRIN [Suspect]
     Active Substance: LEUPROLIDE ACETATE
     Indication: PROSTATE CANCER
     Route: 050
     Dates: start: 20150601

REACTIONS (1)
  - Death [Fatal]

NARRATIVE: CASE EVENT DATE: 20150808
